FAERS Safety Report 5527446-2 (Version None)
Quarter: 2007Q4

REPORT INFORMATION
  Report Type: 
  Country: None (occurrence: None)
  Receive Date: 20071123
  Receipt Date: 20071113
  Transmission Date: 20080405
  Serious: Yes (Other)
  Sender: FDA-Public Use
  Company Number: GXKR2007US09746

PATIENT
  Age: 33 Year
  Sex: Female

DRUGS (6)
  1. CYTARABINE [Suspect]
     Indication: CHRONIC MYELOID LEUKAEMIA
     Dates: start: 19820101
  2. METHOTREXATE [Suspect]
     Indication: PROPHYLAXIS AGAINST GRAFT VERSUS HOST DISEASE
  3. AZATHIOPRINE [Suspect]
     Indication: GRAFT VERSUS HOST DISEASE
  4. PREDNISONE [Suspect]
     Indication: GRAFT VERSUS HOST DISEASE
  5. CYCLOPHOSPHAMIDE [Suspect]
     Indication: CHRONIC MYELOID LEUKAEMIA
     Dates: start: 19820101
  6. IRRADIATION(NO INGREDIENTS/SUBSTANCES) [Suspect]
     Indication: STEM CELL TRANSPLANT
     Dosage: 500 CGY, TOTAL BODY
     Dates: start: 19820101

REACTIONS (3)
  - ACUTE GRAFT VERSUS HOST DISEASE IN SKIN [None]
  - GENERAL PHYSICAL HEALTH DETERIORATION [None]
  - LIP AND/OR ORAL CAVITY CANCER [None]
